FAERS Safety Report 8161248-6 (Version None)
Quarter: 2012Q1

REPORT INFORMATION
  Report Type: 
  Country: None (occurrence: None)
  Receive Date: 20120224
  Receipt Date: 20120214
  Transmission Date: 20120608
  Serious: Yes (Hospitalization, Other)
  Sender: FDA-Public Use
  Company Number: CA-JNJFOC-20110901940

PATIENT
  Sex: Female
  Weight: 62 kg

DRUGS (3)
  1. REMICADE [Suspect]
     Indication: CROHN'S DISEASE
     Route: 042
     Dates: start: 20120105
  2. REMICADE [Suspect]
     Route: 042
     Dates: start: 20071101
  3. WELLBUTRIN [Concomitant]
     Route: 065

REACTIONS (4)
  - MATERNAL EXPOSURE DURING PREGNANCY [None]
  - PYREXIA [None]
  - CYSTITIS [None]
  - FUNGAL INFECTION [None]
